FAERS Safety Report 8545871-2 (Version None)
Quarter: 2012Q3

REPORT INFORMATION
  Report Type: 
  Country: None (occurrence: None)
  Receive Date: 20120727
  Receipt Date: 20111215
  Transmission Date: 20120928
  Serious: No
  Sender: FDA-Public Use
  Company Number: US-ASTRAZENECA-2011SE69725

PATIENT
  Age: 41 Year
  Sex: Female

DRUGS (2)
  1. SEROQUEL XR [Suspect]
     Route: 048
  2. SEROQUEL XR [Suspect]
     Route: 048

REACTIONS (7)
  - MOOD SWINGS [None]
  - MANIA [None]
  - SKIN ULCER [None]
  - THERAPEUTIC RESPONSE UNEXPECTED [None]
  - MALAISE [None]
  - BIPOLAR DISORDER [None]
  - DRUG INEFFECTIVE [None]
